FAERS Safety Report 6206947-8 (Version None)
Quarter: 2009Q2

REPORT INFORMATION
  Report Type: 
  Country: None (occurrence: None)
  Receive Date: 20090528
  Receipt Date: 20090520
  Transmission Date: 20091009
  Serious: Yes (Other)
  Sender: FDA-Public Use
  Company Number: B0570122A

PATIENT
  Sex: Male
  Weight: 25 kg

DRUGS (2)
  1. RELENZA [Suspect]
     Indication: INFLUENZA
     Dosage: 5MG TWICE PER DAY
     Route: 055
     Dates: start: 20090412, end: 20090414
  2. MUCODYNE [Concomitant]
     Route: 048

REACTIONS (5)
  - ABNORMAL BEHAVIOUR [None]
  - FEELING ABNORMAL [None]
  - HALLUCINATION [None]
  - HALLUCINATION, AUDITORY [None]
  - SENSATION OF HEAVINESS [None]
